FAERS Safety Report 20877520 (Version 15)
Quarter: 2023Q2

REPORT INFORMATION
  Report Type: Spontaneous
  Country: US (occurrence: US)
  Receive Date: 20220526
  Receipt Date: 20230427
  Transmission Date: 20230721
  Serious: Yes (Hospitalization, Other)
  Sender: FDA-Public Use
  Company Number: US-PFIZER INC-202200757953

PATIENT
  Age: 50 Year
  Sex: Female

DRUGS (1)
  1. IBRANCE [Suspect]
     Active Substance: PALBOCICLIB
     Dosage: UNK
     Dates: start: 20220412, end: 20230405

REACTIONS (29)
  - Pneumonia [Unknown]
  - Full blood count decreased [Unknown]
  - Back pain [Unknown]
  - Appetite disorder [Unknown]
  - Abdominal discomfort [Unknown]
  - Abdominal pain upper [Unknown]
  - Chest discomfort [Unknown]
  - Limb discomfort [Unknown]
  - Peripheral swelling [Unknown]
  - Rash [Unknown]
  - Pruritus [Unknown]
  - Erythema [Unknown]
  - Vaginal haemorrhage [Unknown]
  - Fatigue [Not Recovered/Not Resolved]
  - Decreased appetite [Unknown]
  - Ageusia [Unknown]
  - Bone pain [Unknown]
  - Gait disturbance [Unknown]
  - Taste disorder [Unknown]
  - Constipation [Unknown]
  - Depression [Unknown]
  - Feeling abnormal [Unknown]
  - Insomnia [Unknown]
  - Muscle spasms [Unknown]
  - White blood cell count decreased [Unknown]
  - Red blood cell count decreased [Unknown]
  - Axillary pain [Unknown]
  - Product dose omission issue [Unknown]
  - Inappropriate schedule of product administration [Unknown]

NARRATIVE: CASE EVENT DATE: 20220101
